FAERS Safety Report 7184242-0 (Version None)
Quarter: 2010Q4

REPORT INFORMATION
  Report Type: 
  Country: None (occurrence: None)
  Receive Date: 20101123
  Receipt Date: 20100914
  Transmission Date: 20110411
  Serious: No
  Sender: FDA-Public Use
  Company Number: 014421

PATIENT
  Sex: Female
  Weight: 86.1 kg

DRUGS (6)
  1. CIMZIA [Suspect]
     Indication: CROHN'S DISEASE
     Dosage: (400 MG 2X/MONTH SUBCUTANEOUS)
     Route: 058
     Dates: start: 20090715
  2. UNKNOWN [Suspect]
     Indication: CROHN'S DISEASE
  3. DARVOCET [Concomitant]
  4. CRESTOR [Concomitant]
  5. CYMBALTA [Concomitant]
  6. VITAMIN D [Concomitant]

REACTIONS (3)
  - ABDOMINAL HERNIA [None]
  - CROHN'S DISEASE [None]
  - MEDICATION ERROR [None]
